FAERS Safety Report 19215663 (Version 1)
Quarter: 2021Q2

REPORT INFORMATION
  Report Type: Spontaneous
  Country: US (occurrence: US)
  Receive Date: 20210505
  Receipt Date: 20210505
  Transmission Date: 20210717
  Serious: Yes (Death, Hospitalization)
  Sender: FDA-Public Use
  Company Number: US-ROCHE-2821263

PATIENT
  Age: 66 Year
  Sex: Female

DRUGS (10)
  1. GARLIC. [Concomitant]
     Active Substance: GARLIC
  2. XELODA [Suspect]
     Active Substance: CAPECITABINE
     Indication: BREAST CANCER METASTATIC
     Dosage: TWICE A DAY FOR 14 DAYS OUT OF 21 DAYS CYCLE
     Route: 048
     Dates: start: 20190403
  3. HERCEPTIN [Suspect]
     Active Substance: TRASTUZUMAB
     Indication: BREAST CANCER METASTATIC
     Route: 065
     Dates: start: 20190403
  4. COMPAZINE [Concomitant]
     Active Substance: PROCHLORPERAZINE MALEATE
  5. GRAPE SEED [Concomitant]
     Active Substance: HERBALS\VITIS VINIFERA SEED
  6. ONDANSETRON HCL [Concomitant]
     Active Substance: ONDANSETRON HYDROCHLORIDE
  7. VITAMIN C [Concomitant]
     Active Substance: ASCORBIC ACID
  8. TUKYSA [Suspect]
     Active Substance: TUCATINIB
     Indication: BREAST CANCER METASTATIC
     Route: 065
     Dates: start: 20190403
  9. FEMARA [Concomitant]
     Active Substance: LETROZOLE
  10. IRON [Concomitant]
     Active Substance: IRON

REACTIONS (10)
  - Failure to thrive [Fatal]
  - Breast cancer metastatic [Fatal]
  - Decreased appetite [Unknown]
  - Fatigue [Unknown]
  - Pneumonia [Unknown]
  - Anaemia [Unknown]
  - Fatigue [Unknown]
  - Palmar-plantar erythrodysaesthesia syndrome [Unknown]
  - Diarrhoea [Unknown]
  - Fatigue [Unknown]

NARRATIVE: CASE EVENT DATE: 20190717
